FAERS Safety Report 22006170 (Version 1)
Quarter: 2023Q1

REPORT INFORMATION
  Report Type: Spontaneous
  Country: US (occurrence: None)
  Receive Date: 20230216
  Receipt Date: 20230216
  Transmission Date: 20230418
  Serious: Yes (Death)
  Sender: FDA-Public Use
  Company Number: None

PATIENT
  Age: 65 Year
  Sex: Male
  Weight: 85.28 kg

DRUGS (6)
  1. VOTRIENT [Suspect]
     Active Substance: PAZOPANIB HYDROCHLORIDE
     Indication: Renal cancer
     Dosage: FREQUENCY : DAILY;?
     Route: 048
     Dates: end: 20230210
  2. ADVIL [Concomitant]
     Active Substance: IBUPROFEN
  3. NIVOLUMAB [Concomitant]
     Active Substance: NIVOLUMAB
  4. PREDNISONE [Concomitant]
     Active Substance: PREDNISONE
  5. TOUJEO [Concomitant]
     Active Substance: INSULIN GLARGINE
  6. TRAMADOL [Concomitant]
     Active Substance: TRAMADOL

REACTIONS (1)
  - Death [None]

NARRATIVE: CASE EVENT DATE: 20230210
